FAERS Safety Report 19055530 (Version 2)
Quarter: 2021Q2

REPORT INFORMATION
  Report Type: Spontaneous
  Country: GB (occurrence: GB)
  Receive Date: 20210325
  Receipt Date: 20210504
  Transmission Date: 20210717
  Serious: Yes (Life-Threatening, Hospitalization, Disabling, Other)
  Sender: FDA-Public Use
  Company Number: GB-MYLANLABS-2021M1017619

PATIENT
  Age: 43 Year
  Sex: Male
  Weight: 79.5 kg

DRUGS (8)
  1. PIRENZEPINE [Concomitant]
     Active Substance: PIRENZEPINE
     Indication: ADVERSE DRUG REACTION
     Dosage: 50 MILLIGRAM, BID
     Route: 048
  2. CLONAZEPAM. [Concomitant]
     Active Substance: CLONAZEPAM
     Indication: ANXIOLYTIC THERAPY
     Dosage: 1 MILLIGRAM, TID
     Route: 048
  3. COLECALCIFEROL [Concomitant]
     Active Substance: CHOLECALCIFEROL
     Indication: VITAMIN D DEFICIENCY
     Dosage: 800 MILLIGRAM, AM (MANE)
     Route: 048
  4. PHENYTOIN. [Concomitant]
     Active Substance: PHENYTOIN
     Indication: EPILEPSY
     Dosage: 700 MILLIGRAM, PM (NOCTE)
     Route: 048
  5. RANITIDINE. [Concomitant]
     Active Substance: RANITIDINE
     Indication: GASTROOESOPHAGEAL REFLUX DISEASE
     Dosage: 150 MILLIGRAM, BID
     Route: 048
  6. AMISULPRIDE [Concomitant]
     Active Substance: AMISULPRIDE
     Indication: NEGATIVE SYMPTOMS IN SCHIZOPHRENIA
     Dosage: 200 MILLIGRAM, BID
     Route: 048
  7. LITHIUM CARBONATE CAMBER [Concomitant]
     Indication: SCHIZOAFFECTIVE DISORDER
     Dosage: 800 MILLIGRAM, PM (NOCTE)
  8. CLOZARIL [Suspect]
     Active Substance: CLOZAPINE
     Indication: SCHIZOPHRENIA
     Dosage: 300 MG,BID
     Route: 048
     Dates: start: 20160421, end: 20210303

REACTIONS (5)
  - Cardiac arrest [Not Recovered/Not Resolved]
  - Upper gastrointestinal haemorrhage [Unknown]
  - Hypoxic-ischaemic encephalopathy [Unknown]
  - Vomiting [Not Recovered/Not Resolved]
  - Brain injury [Not Recovered/Not Resolved]

NARRATIVE: CASE EVENT DATE: 20210303
